FAERS Safety Report 7078144-8 (Version None)
Quarter: 2010Q4

REPORT INFORMATION
  Report Type: 
  Country: None (occurrence: None)
  Receive Date: 20101101
  Receipt Date: 20101101
  Transmission Date: 20110411
  Serious: No
  Sender: FDA-Public Use
  Company Number: None

PATIENT
  Age: 40 Year
  Sex: Female
  Weight: 52.6173 kg

DRUGS (10)
  1. GAMMAGARD LIQUID [Suspect]
     Indication: IMMUNODEFICIENCY COMMON VARIABLE
     Dosage: 30 GRAMS OVER 6 HOURS IV EVERY MONTH WITH ACCREDO
     Route: 042
     Dates: start: 20100401
  2. NASONEX [Concomitant]
  3. OMNARIS [Concomitant]
  4. HYDROCODONE BITARTRATE + ACETAMINOPHEN [Concomitant]
  5. IBUPROFEN [Concomitant]
  6. YAZ [Concomitant]
  7. RELPAX [Concomitant]
  8. TOPIRAMATE [Concomitant]
  9. ACETAMINOPHEN [Concomitant]
  10. DEXTROSE [Concomitant]

REACTIONS (7)
  - FATIGUE [None]
  - FEELING COLD [None]
  - HEADACHE [None]
  - HYPOTENSION [None]
  - INFECTION [None]
  - INFUSION RELATED REACTION [None]
  - PYREXIA [None]
